FAERS Safety Report 5060857-0 (Version None)
Quarter: 2006Q3

REPORT INFORMATION
  Report Type: 
  Country: None (occurrence: None)
  Receive Date: 20060725
  Receipt Date: 20060719
  Transmission Date: 20061208
  Serious: Yes (Other)
  Sender: FDA-Public Use
  Company Number: DE-GLAXOSMITHKLINE-D0050377A

PATIENT
  Sex: Male

DRUGS (1)
  1. TELZIR [Suspect]
     Route: 048

REACTIONS (1)
  - ANAEMIA [None]
